FAERS Safety Report 11173697 (Version 2)
Quarter: 2015Q3

REPORT INFORMATION
  Report Type: Spontaneous
  Country: US (occurrence: US)
  Receive Date: 20150609
  Receipt Date: 20150707
  Transmission Date: 20151125
  Serious: Yes (Other)
  Sender: FDA-Public Use
  Company Number: US-AUROBINDO-AUR-APL-2015-04938

PATIENT
  Age: 74 Year
  Sex: Female

DRUGS (1)
  1. PRAMIPEXOLE. [Suspect]
     Active Substance: PRAMIPEXOLE
     Indication: PARKINSONISM
     Route: 065

REACTIONS (6)
  - Dysarthria [Unknown]
  - Wheelchair user [Unknown]
  - Postural tremor [Unknown]
  - Dyskinesia [Unknown]
  - Dystonia [Unknown]
  - Activities of daily living impaired [Unknown]
